FAERS Safety Report 17416074 (Version 2)
Quarter: 2020Q3

REPORT INFORMATION
  Report Type: Report from Study
  Country: JP (occurrence: JP)
  Receive Date: 20200213
  Receipt Date: 20200925
  Transmission Date: 20201102
  Serious: Yes (Other)
  Sender: FDA-Public Use
  Company Number: JP-BAUSCH-BL-2020-003662

PATIENT
  Age: 51 Year
  Sex: Male
  Weight: 80 kg

DRUGS (25)
  1. CHOREAZINE TABLETS 12.5MG [Suspect]
     Active Substance: TETRABENAZINE
     Indication: HUNTINGTON^S DISEASE
     Route: 048
     Dates: start: 20161117, end: 20161201
  2. CHOREAZINE TABLETS 12.5MG [Suspect]
     Active Substance: TETRABENAZINE
     Route: 048
     Dates: start: 20170711, end: 20171120
  3. METFORMIN HYDROCHLORIDE. [Concomitant]
     Active Substance: METFORMIN HYDROCHLORIDE
     Route: 048
     Dates: start: 20170808, end: 20181204
  4. CHOREAZINE TABLETS 12.5MG [Suspect]
     Active Substance: TETRABENAZINE
     Route: 048
     Dates: start: 20161216, end: 20161229
  5. CHOREAZINE TABLETS 12.5MG [Suspect]
     Active Substance: TETRABENAZINE
     Route: 048
     Dates: start: 20170501, end: 20170512
  6. CHOREAZINE TABLETS 12.5MG [Suspect]
     Active Substance: TETRABENAZINE
     Route: 048
     Dates: start: 20170525, end: 20170710
  7. FAMOTIDINE D [Concomitant]
     Active Substance: FAMOTIDINE
     Indication: PROPHYLAXIS
     Route: 048
     Dates: start: 20161117, end: 20170215
  8. LOXOPROFEN SODIUM HYDRATE [Concomitant]
     Active Substance: LOXOPROFEN SODIUM DIHYDRATE
     Route: 048
     Dates: start: 20170314, end: 20170430
  9. LOXOPROFEN SODIUM HYDRATE [Concomitant]
     Active Substance: LOXOPROFEN SODIUM DIHYDRATE
     Route: 048
     Dates: start: 20170501, end: 20170612
  10. FAMOTIDINE D [Concomitant]
     Active Substance: FAMOTIDINE
     Route: 048
     Dates: start: 20170501
  11. METFORMIN HYDROCHLORIDE. [Concomitant]
     Active Substance: METFORMIN HYDROCHLORIDE
     Indication: DIABETES MELLITUS
     Route: 048
     Dates: start: 20170912
  12. CHOREAZINE TABLETS 12.5MG [Suspect]
     Active Substance: TETRABENAZINE
     Route: 048
     Dates: start: 20170518, end: 20170524
  13. FAMOTIDINE D [Concomitant]
     Active Substance: FAMOTIDINE
     Route: 048
     Dates: start: 20170314, end: 20170430
  14. BRUFEN [Concomitant]
     Active Substance: IBUPROFEN
     Indication: HUNTINGTON^S DISEASE
     Dosage: AS NECESSARY
     Route: 048
     Dates: start: 20171212
  15. CHOREAZINE TABLETS 12.5MG [Suspect]
     Active Substance: TETRABENAZINE
     Route: 048
     Dates: start: 20170113, end: 20170430
  16. LOXOPROFEN SODIUM HYDRATE [Concomitant]
     Active Substance: LOXOPROFEN SODIUM DIHYDRATE
     Indication: HUNTINGTON^S DISEASE
     Route: 048
     Dates: start: 20161117, end: 20170215
  17. CHOREAZINE TABLETS 12.5MG [Suspect]
     Active Substance: TETRABENAZINE
     Route: 048
     Dates: start: 20171121
  18. LOXOPROFEN SODIUM HYDRATE [Concomitant]
     Active Substance: LOXOPROFEN SODIUM DIHYDRATE
     Route: 048
     Dates: start: 20170613, end: 20170911
  19. LOXOPROFEN SODIUM HYDRATE [Concomitant]
     Active Substance: LOXOPROFEN SODIUM DIHYDRATE
     Route: 048
     Dates: start: 20170912
  20. MOHRUS TAPE [Concomitant]
     Active Substance: KETOPROFEN
     Indication: HUNTINGTON^S DISEASE
     Dosage: 80 MG/ AS NECESSARY
     Dates: start: 20170501
  21. CHOREAZINE TABLETS 12.5MG [Suspect]
     Active Substance: TETRABENAZINE
     Route: 048
     Dates: start: 20161202, end: 20161215
  22. CHOREAZINE TABLETS 12.5MG [Suspect]
     Active Substance: TETRABENAZINE
     Route: 048
     Dates: start: 20161230, end: 20170112
  23. CHOREAZINE TABLETS 12.5MG [Suspect]
     Active Substance: TETRABENAZINE
     Route: 048
     Dates: start: 20170513, end: 20170517
  24. ONGLYZA [Concomitant]
     Active Substance: SAXAGLIPTIN HYDROCHLORIDE
     Indication: DIABETES MELLITUS
     Route: 048
     Dates: start: 20170808
  25. DICLOFENAC SODIUM. [Concomitant]
     Active Substance: DICLOFENAC SODIUM
     Indication: HUNTINGTON^S DISEASE
     Dosage: FREQUENCY: AS NECESSARY
     Route: 048
     Dates: start: 20171121

REACTIONS (6)
  - Ligament sprain [Recovered/Resolved]
  - Somnolence [Recovered/Resolved]
  - Diabetes mellitus [Recovering/Resolving]
  - Fall [Recovered/Resolved]
  - Fall [Recovered/Resolved]
  - Urticaria [Recovered/Resolved]

NARRATIVE: CASE EVENT DATE: 20161129
